FAERS Safety Report 24845477 (Version 1)
Quarter: 2025Q1

REPORT INFORMATION
  Report Type: Spontaneous
  Country: CA (occurrence: CA)
  Receive Date: 20250115
  Receipt Date: 20250115
  Transmission Date: 20250408
  Serious: Yes (Life-Threatening, Other)
  Sender: PFIZER
  Company Number: CA-PFIZER INC-202500007498

PATIENT
  Age: 62 Year
  Sex: Female

DRUGS (1)
  1. CARBOPLATIN [Suspect]
     Active Substance: CARBOPLATIN
     Route: 042

REACTIONS (1)
  - Anaphylactic reaction [Recovered/Resolved]
